FAERS Safety Report 8790293 (Version 1)
Quarter: 2012Q4

REPORT INFORMATION
  Report Type: 
  Country: GB (occurrence: GB)
  Receive Date: 20120917
  Receipt Date: 20120917
  Transmission Date: 20130627
  Serious: Yes (Death, Other)
  Sender: FDA-Public Use
  Company Number: PHHY2012GB080328

PATIENT
  Age: 3 Month

DRUGS (1)
  1. PREDNISOLONE [Suspect]
     Indication: ACUTE LYMPHOCYTIC LEUKAEMIA
     Dosage: 01 mg/kg, QD

REACTIONS (6)
  - Acute lymphocytic leukaemia [Fatal]
  - Malignant neoplasm progression [Fatal]
  - Leukaemia recurrent [Recovered/Resolved]
  - Drug ineffective [Unknown]
  - Graft versus host disease in skin [None]
  - Klebsiella infection [None]
